FAERS Safety Report 14227775 (Version 9)
Quarter: 2018Q2

REPORT INFORMATION
  Report Type: Spontaneous
  Country: GB (occurrence: GB)
  Receive Date: 20171127
  Receipt Date: 20180628
  Transmission Date: 20180711
  Serious: Yes (Hospitalization, Other)
  Sender: FDA-Public Use
  Company Number: GB-OTSUKA-DJ20105365

PATIENT
  Age: 35 Year
  Sex: Female
  Weight: 54 kg

DRUGS (19)
  1. AMOXICILLIN TRIHYDRATE [Concomitant]
     Active Substance: AMOXICILLIN
     Indication: PRODUCT USED FOR UNKNOWN INDICATION
     Dosage: 3 DF, QD (1 DF, 3X/DAY)
     Route: 048
     Dates: start: 20100328
  2. SERTRALINE [Suspect]
     Active Substance: SERTRALINE HYDROCHLORIDE
     Indication: PRODUCT USED FOR UNKNOWN INDICATION
     Dosage: 100MG, BID (100 MG, 2X/DAY)
     Route: 048
  3. OMEPRAZOLE. [Concomitant]
     Active Substance: OMEPRAZOLE
     Indication: PRODUCT USED FOR UNKNOWN INDICATION
     Dosage: 20 MG, QD
     Route: 048
     Dates: start: 20090501
  4. CLOBAZAM [Concomitant]
     Active Substance: CLOBAZAM
     Indication: PRODUCT USED FOR UNKNOWN INDICATION
     Dosage: UNK
     Route: 065
  5. PROCHLORPERAZINE. [Concomitant]
     Active Substance: PROCHLORPERAZINE
     Indication: NAUSEA
     Dosage: 5 MG, PRN (AS NEEDED)
     Route: 048
     Dates: start: 20091221
  6. LAMICTAL [Suspect]
     Active Substance: LAMOTRIGINE
     Indication: EPILEPSY
     Dosage: 800 MG, QD (400 MG BID)
     Route: 048
  7. DIHYDROCODEINE [Concomitant]
     Active Substance: DIHYDROCODEINE
     Indication: BACK PAIN
     Dosage: 30 MG, TID (1-2TDS, RECEIVED ON 23-SEP-2009)
     Route: 065
     Dates: start: 20090923
  8. LIDOCAINE. [Concomitant]
     Active Substance: LIDOCAINE
     Indication: PRODUCT USED FOR UNKNOWN INDICATION
     Dosage: UNK
     Route: 065
  9. FOLIC ACID. [Concomitant]
     Active Substance: FOLIC ACID
     Indication: PRODUCT USED FOR UNKNOWN INDICATION
     Dosage: 5 MG, UNK
     Route: 048
     Dates: start: 20091130
  10. MICONAZOLE. [Concomitant]
     Active Substance: MICONAZOLE
     Indication: PRODUCT USED FOR UNKNOWN INDICATION
     Dosage: UNK
     Route: 065
  11. LANSOPRAZOLE. [Suspect]
     Active Substance: LANSOPRAZOLE
     Indication: PRODUCT USED FOR UNKNOWN INDICATION
     Dosage: 30 MG, UNK
     Route: 048
  12. PROPRANOLOL HCL [Suspect]
     Active Substance: PROPRANOLOL HYDROCHLORIDE
     Indication: PRODUCT USED FOR UNKNOWN INDICATION
     Dosage: 10 MG, UNK
     Route: 048
  13. AMOXICILLIN TRIHYDRATE [Concomitant]
     Active Substance: AMOXICILLIN
     Dosage: 1500 MG, QD (500 MG, 3X/DAY)
     Route: 048
     Dates: start: 20091023
  14. CHLORAMPHENICOL [Concomitant]
     Active Substance: CHLORAMPHENICOL
     Indication: PRODUCT USED FOR UNKNOWN INDICATION
     Dosage: 0.5 DF, QID
     Route: 048
     Dates: start: 20090722
  15. ARIPIPRAZOLE. [Suspect]
     Active Substance: ARIPIPRAZOLE
     Indication: PRODUCT USED FOR UNKNOWN INDICATION
     Dosage: 30 MG, UNK
     Route: 048
  16. NORETHISTERONE ACETATE [Suspect]
     Active Substance: NORETHINDRONE ACETATE
     Indication: BACK PAIN
     Dosage: 350 MG, UNK
     Route: 048
  17. LACTULOSE. [Concomitant]
     Active Substance: LACTULOSE
     Indication: PRODUCT USED FOR UNKNOWN INDICATION
     Dosage: 1 DF, QD (1DF=3.35G/5ML 5 TO 10ML/D)
     Route: 065
     Dates: start: 20090506
  18. DICLOFENAC SODIUM. [Concomitant]
     Active Substance: DICLOFENAC SODIUM
     Indication: PRODUCT USED FOR UNKNOWN INDICATION
     Dosage: 150 MG, QD (50 MG, 3X/DAY (GEL))
     Route: 065
     Dates: start: 20090501
  19. BETAMETHASONE. [Concomitant]
     Active Substance: BETAMETHASONE
     Indication: PRODUCT USED FOR UNKNOWN INDICATION
     Dosage: 0.2 %, QD (0.1 %, 2X/DAY)
     Route: 045
     Dates: start: 20090722

REACTIONS (4)
  - Live birth [Unknown]
  - Premature labour [Unknown]
  - Maternal exposure during pregnancy [Unknown]
  - Cholestasis of pregnancy [Recovered/Resolved]

NARRATIVE: CASE EVENT DATE: 20090902
